FAERS Safety Report 21279579 (Version 1)
Quarter: 2022Q3

REPORT INFORMATION
  Report Type: Spontaneous
  Country: US (occurrence: US)
  Receive Date: 20220901
  Receipt Date: 20220901
  Transmission Date: 20221027
  Serious: No
  Sender: FDA-Public Use
  Company Number: US-BoehringerIngelheim-2022-BI-190012

PATIENT
  Age: 79 Year
  Sex: Female

DRUGS (1)
  1. COMBIVENT [Suspect]
     Active Substance: ALBUTEROL SULFATE\IPRATROPIUM BROMIDE
     Indication: Product used for unknown indication
     Dosage: COMBIVENT RESPIMAT INHALATION AEROSOL SOLUTION 20-100 MCG/ACT
     Route: 048

REACTIONS (1)
  - Extra dose administered [Not Recovered/Not Resolved]
